FAERS Safety Report 5357186-4 (Version None)
Quarter: 2007Q2

REPORT INFORMATION
  Report Type: 
  Country: None (occurrence: None)
  Receive Date: 20070614
  Receipt Date: 20070606
  Transmission Date: 20071010
  Serious: Yes (Other)
  Sender: FDA-Public Use
  Company Number: US-JNJFOC-20070601843

PATIENT
  Sex: Female
  Weight: 68.04 kg

DRUGS (4)
  1. DURAGESIC-100 [Suspect]
     Indication: PAIN
     Route: 062
  2. SOMA [Concomitant]
     Indication: MUSCLE SPASMS
     Route: 048
  3. CYMBALTA [Concomitant]
     Indication: MUSCLE SPASMS
     Route: 048
  4. OXYCODONE HCL [Concomitant]
     Indication: BACK PAIN
     Route: 048

REACTIONS (3)
  - DRUG WITHDRAWAL SYNDROME [None]
  - INAPPROPRIATE SCHEDULE OF DRUG ADMINISTRATION [None]
  - NEURALGIA [None]
